FAERS Safety Report 6279959-6 (Version None)
Quarter: 2009Q3

REPORT INFORMATION
  Report Type: 
  Country: None (occurrence: None)
  Receive Date: 20090723
  Receipt Date: 20090324
  Transmission Date: 20100115
  Serious: No
  Sender: FDA-Public Use
  Company Number: US-AMGEN-KDL340143

PATIENT
  Age: 90 Year
  Sex: Female
  Weight: 54.5 kg

DRUGS (4)
  1. PROCRIT [Suspect]
     Indication: RENAL FAILURE CHRONIC
     Route: 058
     Dates: start: 20080101
  2. UNSPECIFIED ANTIHYPERTENSIVE AGENT [Concomitant]
  3. LASIX [Concomitant]
  4. UNSPECIFIED THYROID MEDICATION [Concomitant]

REACTIONS (4)
  - ANGER [None]
  - ANXIETY [None]
  - PERSONALITY CHANGE [None]
  - SOCIAL AVOIDANT BEHAVIOUR [None]
